FAERS Safety Report 11436855 (Version 1)
Quarter: 2015Q3

REPORT INFORMATION
  Report Type: Spontaneous
  Country: US (occurrence: US)
  Receive Date: 20150821
  Receipt Date: 20150821
  Transmission Date: 20151125
  Serious: No
  Sender: FDA-Public Use
  Company Number: US-ELI_LILLY_AND_COMPANY-US200608006388

PATIENT
  Age: 57 Year
  Sex: Female
  Weight: 99.77 kg

DRUGS (5)
  1. CYMBALTA [Suspect]
     Active Substance: DULOXETINE HYDROCHLORIDE
     Dosage: 30 MG, UNK
     Route: 048
     Dates: start: 20060809, end: 20060821
  2. GABAPENTIN. [Concomitant]
     Active Substance: GABAPENTIN
     Dosage: 3000 MG, UNK
     Dates: start: 2002
  3. AMITRIPTYLINE [Concomitant]
     Active Substance: AMITRIPTYLINE
     Dosage: 100 MG, EACH EVENING
  4. CYMBALTA [Suspect]
     Active Substance: DULOXETINE HYDROCHLORIDE
     Indication: FIBROMYALGIA
     Dosage: 60 MG, DAILY (1/D)
     Route: 048
     Dates: start: 200507, end: 20060808
  5. VITAMINS [Concomitant]
     Active Substance: VITAMINS
     Dosage: UNK D/F, UNK

REACTIONS (3)
  - Paraesthesia [Recovering/Resolving]
  - Dizziness [Recovering/Resolving]
  - Lethargy [Recovering/Resolving]

NARRATIVE: CASE EVENT DATE: 200608
